FAERS Safety Report 6298933-7 (Version None)
Quarter: 2009Q3

REPORT INFORMATION
  Report Type: 
  Country: None (occurrence: None)
  Receive Date: 20090804
  Receipt Date: 20090724
  Transmission Date: 20100115
  Serious: Yes (Hospitalization, Other)
  Sender: FDA-Public Use
  Company Number: 84524

PATIENT
  Age: 50 Year
  Sex: Male

DRUGS (1)
  1. BUPRENORPHINE HCL        INJ. 0.3MG/ML (1ML [Suspect]
     Dosage: 3-5 8MG TABLETS

REACTIONS (2)
  - DRUG ABUSE [None]
  - HEPATITIS ACUTE [None]
